FAERS Safety Report 12832131 (Version 2)
Quarter: 2016Q4

REPORT INFORMATION
  Report Type: Spontaneous
  Country: GB (occurrence: GB)
  Receive Date: 20161010
  Receipt Date: 20161013
  Transmission Date: 20170207
  Serious: Yes (Hospitalization, Other)
  Sender: FDA-Public Use
  Company Number: GB-DRREDDYS-GER/UKI/16/0083684

PATIENT
  Age: 54 Year
  Sex: Male

DRUGS (10)
  1. CLOZARIL [Suspect]
     Active Substance: CLOZAPINE
     Indication: SCHIZOPHRENIA
     Route: 048
     Dates: start: 20160421
  2. TRIMETHOPRIM. [Concomitant]
     Active Substance: TRIMETHOPRIM
     Indication: INFECTION
     Dates: start: 20160913, end: 20160920
  3. ATORVASTATIN [Concomitant]
     Active Substance: ATORVASTATIN
     Indication: PRODUCT USED FOR UNKNOWN INDICATION
     Dosage: 40 MG, QN
  4. RISPERIDONE. [Suspect]
     Active Substance: RISPERIDONE
     Indication: PRODUCT USED FOR UNKNOWN INDICATION
     Route: 048
  5. OMEPRAZOLE. [Concomitant]
     Active Substance: OMEPRAZOLE
     Indication: PRODUCT USED FOR UNKNOWN INDICATION
  6. DOCUSATE [Concomitant]
     Active Substance: DOCUSATE
     Indication: PRODUCT USED FOR UNKNOWN INDICATION
  7. SENNA [Concomitant]
     Active Substance: SENNA LEAF\SENNOSIDES\SENNOSIDES A AND B
     Indication: PRODUCT USED FOR UNKNOWN INDICATION
  8. TRIHEXYPHENIDYL [Concomitant]
     Active Substance: TRIHEXYPHENIDYL
     Indication: PRODUCT USED FOR UNKNOWN INDICATION
  9. CHOLECALCIFEROL [Concomitant]
     Active Substance: CHOLECALCIFEROL
     Indication: PRODUCT USED FOR UNKNOWN INDICATION
  10. LISINOPRIL. [Concomitant]
     Active Substance: LISINOPRIL
     Indication: PRODUCT USED FOR UNKNOWN INDICATION

REACTIONS (8)
  - White blood cell count increased [Unknown]
  - Haemoglobin increased [Unknown]
  - Urosepsis [Recovered/Resolved]
  - Neutrophil count increased [Unknown]
  - Urinary tract infection [Recovered/Resolved]
  - Urinary incontinence [Unknown]
  - Malaise [Unknown]
  - C-reactive protein increased [Unknown]

NARRATIVE: CASE EVENT DATE: 20160823
